FAERS Safety Report 17864145 (Version 1)
Quarter: 2020Q2

REPORT INFORMATION
  Report Type: Spontaneous
  Country: US (occurrence: US)
  Receive Date: 20200604
  Receipt Date: 20200604
  Transmission Date: 20200714
  Serious: Yes (Hospitalization)
  Sender: FDA-Public Use
  Company Number: None

PATIENT
  Age: 62 Year
  Sex: Female

DRUGS (17)
  1. BUDESONIDE. [Concomitant]
     Active Substance: BUDESONIDE
  2. CLARITIN [Concomitant]
     Active Substance: LORATADINE
  3. ZIPSOR [Concomitant]
     Active Substance: DICLOFENAC POTASSIUM
  4. VANIQA [Concomitant]
     Active Substance: EFLORNITHINE HYDROCHLORIDE
  5. ATORVASTATIN [Concomitant]
     Active Substance: ATORVASTATIN
  6. ONTELUKAST [Concomitant]
  7. TYLENOL [Concomitant]
     Active Substance: ACETAMINOPHEN
  8. DEXAMETHASONE. [Concomitant]
     Active Substance: DEXAMETHASONE
  9. FIBERCON [Concomitant]
     Active Substance: CALCIUM POLYCARBOPHIL
  10. FUROSEMIDE. [Concomitant]
     Active Substance: FUROSEMIDE
  11. OZEMPIC [Concomitant]
     Active Substance: SEMAGLUTIDE
  12. GABAPENTIN. [Concomitant]
     Active Substance: GABAPENTIN
  13. KLOR-CON [Concomitant]
     Active Substance: POTASSIUM CHLORIDE
  14. RESTASIS [Concomitant]
     Active Substance: CYCLOSPORINE
  15. ORENCIA [Suspect]
     Active Substance: ABATACEPT
     Indication: RHEUMATOID ARTHRITIS
     Route: 058
     Dates: start: 20190824
  16. LEVOTHYROXIN [Concomitant]
     Active Substance: LEVOTHYROXINE
  17. METHOTREXATE. [Concomitant]
     Active Substance: METHOTREXATE

REACTIONS (2)
  - Thyroid cancer [None]
  - Therapy interrupted [None]

NARRATIVE: CASE EVENT DATE: 20200515
